FAERS Safety Report 4654916-1 (Version None)
Quarter: 2005Q2

REPORT INFORMATION
  Report Type: 
  Country: None (occurrence: None)
  Receive Date: 20050506
  Receipt Date: 20040813
  Transmission Date: 20051028
  Serious: No
  Sender: FDA-Public Use
  Company Number: 2004/01476-ROC (0)

PATIENT
  Age: 5 Year
  Sex: Female

DRUGS (3)
  1. AMOXICILLIN [Suspect]
     Indication: BRONCHIAL INFECTION
     Dosage: 5MG TWICE PER DAY
     Route: 048
     Dates: start: 20040716, end: 20040719
  2. DELSYM [Suspect]
     Indication: COUGH
     Dosage: 5MG PER DAY
     Route: 048
     Dates: start: 20040718, end: 20040718
  3. TYLENOL COLD + COUGH [Concomitant]
     Indication: COUGH
     Route: 048
     Dates: start: 20040717

REACTIONS (3)
  - PRURITUS [None]
  - RASH [None]
  - RASH ERYTHEMATOUS [None]
